FAERS Safety Report 9473038 (Version 2)
Quarter: 2014Q3

REPORT INFORMATION
  Report Type: Spontaneous
  Country: US (occurrence: US)
  Receive Date: 20130823
  Receipt Date: 20140808
  Transmission Date: 20150326
  Serious: Yes (Other)
  Sender: FDA-Public Use
  Company Number: US-BRISTOL-MYERS SQUIBB COMPANY-17355223

PATIENT
  Age: 65 Year
  Sex: Male
  Weight: 92.97 kg

DRUGS (4)
  1. NEURONTIN [Concomitant]
     Active Substance: GABAPENTIN
  2. AMBIEN [Concomitant]
     Active Substance: ZOLPIDEM TARTRATE
  3. SPRYCEL (CML) TABS 20 MG [Suspect]
     Active Substance: DASATINIB
     Indication: CHRONIC MYELOID LEUKAEMIA
     Dosage: EXP DT:FEB2016?DOSE:100MG REDUCED TO 40MG THEN TO 20MG.?EXP DATE: MARCH2015
     Route: 048
     Dates: start: 2008
  4. LORAZEPAM. [Concomitant]
     Active Substance: LORAZEPAM

REACTIONS (11)
  - Erythema [Unknown]
  - Dry skin [Unknown]
  - Skin haemorrhage [Unknown]
  - Malaise [Unknown]
  - Malignant neoplasm progression [Unknown]
  - Skin fissures [Unknown]
  - Skin exfoliation [Unknown]
  - Neuralgia [Not Recovered/Not Resolved]
  - Rash [Unknown]
  - Pain of skin [Unknown]
  - Drug dose omission [Unknown]
